FAERS Safety Report 18124897 (Version 1)
Quarter: 2020Q3

REPORT INFORMATION
  Report Type: Spontaneous
  Country: IT (occurrence: IT)
  Receive Date: 20200807
  Receipt Date: 20200807
  Transmission Date: 20201103
  Serious: Yes (Death, Hospitalization, Other)
  Sender: FDA-Public Use
  Company Number: IT-AMNEAL PHARMACEUTICALS-2020-AMRX-02313

PATIENT
  Age: 53 Year
  Sex: Female

DRUGS (3)
  1. PANTOPRAZOLE SODIUM. [Suspect]
     Active Substance: PANTOPRAZOLE SODIUM
     Indication: PRODUCT USED FOR UNKNOWN INDICATION
     Dosage: 40 MILLIGRAM, QD
     Route: 065
  2. NADROPARIN [Suspect]
     Active Substance: NADROPARIN
     Indication: PULMONARY EMBOLISM
     Dosage: 5700 UI, EVERY 12HR
     Route: 065
  3. NADROPARIN [Suspect]
     Active Substance: NADROPARIN
     Indication: DEEP VEIN THROMBOSIS

REACTIONS (1)
  - Factor V deficiency [Fatal]
